FAERS Safety Report 8060447-1 (Version None)
Quarter: 2012Q1

REPORT INFORMATION
  Report Type: 
  Country: None (occurrence: None)
  Receive Date: 20120120
  Receipt Date: 20120111
  Transmission Date: 20120608
  Serious: Yes (Life-Threatening)
  Sender: FDA-Public Use
  Company Number: FR-GLAXOSMITHKLINE-B0774655A

PATIENT
  Age: 68 Year
  Sex: Female

DRUGS (2)
  1. ASPEGIC 325 [Concomitant]
     Indication: ACUTE CORONARY SYNDROME
     Dosage: 250MG PER DAY
     Route: 065
  2. ARIXTRA [Suspect]
     Indication: ACUTE CORONARY SYNDROME
     Dosage: 2.5MG PER DAY
     Route: 058
     Dates: start: 20111101

REACTIONS (2)
  - SUBARACHNOID HAEMORRHAGE [None]
  - COMA [None]
